FAERS Safety Report 4761957-2 (Version None)
Quarter: 2005Q3

REPORT INFORMATION
  Report Type: 
  Country: None (occurrence: None)
  Receive Date: 20050906
  Receipt Date: 20050218
  Transmission Date: 20060218
  Serious: Yes (Hospitalization, Other)
  Sender: FDA-Public Use
  Company Number: GB-MERCK-0502GBR00185

PATIENT
  Age: 49 Year
  Sex: Female

DRUGS (1)
  1. VIOXX [Suspect]
     Indication: OSTEOARTHRITIS
     Route: 048
     Dates: start: 19991101, end: 20041001

REACTIONS (5)
  - BLINDNESS [None]
  - CEREBROVASCULAR ACCIDENT [None]
  - EPILEPSY [None]
  - PARALYSIS [None]
  - TUNNEL VISION [None]
